FAERS Safety Report 8234735-X (Version None)
Quarter: 2012Q1

REPORT INFORMATION
  Report Type: 
  Country: None (occurrence: None)
  Receive Date: 20120326
  Receipt Date: 20120315
  Transmission Date: 20120608
  Serious: Yes (Life-Threatening, Hospitalization, Other)
  Sender: FDA-Public Use
  Company Number: GB-TEVA-312779ISR

PATIENT
  Age: 61 Year
  Sex: Male

DRUGS (3)
  1. COPAXONE [Suspect]
     Indication: MULTIPLE SCLEROSIS
     Route: 058
     Dates: start: 20100101, end: 20111104
  2. FEXOFENADINE [Concomitant]
     Route: 048
  3. GARLIC [Concomitant]
     Dosage: STARTED YEARS AGO.
     Route: 048

REACTIONS (3)
  - IDIOPATHIC THROMBOCYTOPENIC PURPURA [None]
  - PLATELET COUNT DECREASED [None]
  - CONTUSION [None]
